FAERS Safety Report 8663570 (Version 15)
Quarter: 2015Q3

REPORT INFORMATION
  Report Type: Report from Study
  Country: CA (occurrence: CA)
  Receive Date: 20120713
  Receipt Date: 20150813
  Transmission Date: 20151125
  Serious: Yes (Other)
  Sender: FDA-Public Use
  Company Number: PHHY2012CA051576

PATIENT
  Age: 56 Year
  Sex: Male

DRUGS (5)
  1. AMANTADINE [Concomitant]
     Active Substance: AMANTADINE
     Indication: FATIGUE
     Dosage: 100 MG, BID
     Route: 065
  2. VIAGRA [Concomitant]
     Active Substance: SILDENAFIL CITRATE
     Indication: PRODUCT USED FOR UNKNOWN INDICATION
     Dosage: UNK, PRN
     Route: 065
  3. VITAMIN D [Concomitant]
     Active Substance: CHOLECALCIFEROL
     Indication: PRODUCT USED FOR UNKNOWN INDICATION
     Dosage: 4000 OT, QD
     Route: 065
  4. GILENYA [Suspect]
     Active Substance: FINGOLIMOD HYDROCHLORIDE
     Indication: RELAPSING-REMITTING MULTIPLE SCLEROSIS
     Dosage: 0.5 MG, QD
     Route: 048
     Dates: start: 20120517
  5. RAMIPRIL. [Concomitant]
     Active Substance: RAMIPRIL
     Indication: PRODUCT USED FOR UNKNOWN INDICATION
     Dosage: 5 OT, QD
     Route: 065

REACTIONS (29)
  - Musculoskeletal stiffness [Recovering/Resolving]
  - Vision blurred [Unknown]
  - Hypoaesthesia [Unknown]
  - Chest discomfort [Recovering/Resolving]
  - Dyspepsia [Unknown]
  - Tinnitus [Unknown]
  - Dizziness [Recovering/Resolving]
  - Ataxia [Unknown]
  - Blood pressure increased [Recovering/Resolving]
  - Blood cholesterol increased [Not Recovered/Not Resolved]
  - Nausea [Recovering/Resolving]
  - Muscle spasticity [Unknown]
  - Back pain [Recovering/Resolving]
  - Low density lipoprotein increased [Not Recovered/Not Resolved]
  - Sensory loss [Unknown]
  - Balance disorder [Recovering/Resolving]
  - Musculoskeletal pain [Unknown]
  - Urine analysis abnormal [Unknown]
  - Multiple sclerosis relapse [Unknown]
  - Fatigue [Recovering/Resolving]
  - Visual impairment [Unknown]
  - Disturbance in attention [Unknown]
  - Headache [Recovering/Resolving]
  - Urinary hesitation [Unknown]
  - Head discomfort [Recovering/Resolving]
  - Astigmatism [Unknown]
  - Eye pain [Recovered/Resolved]
  - Gait disturbance [Recovering/Resolving]
  - Memory impairment [Unknown]

NARRATIVE: CASE EVENT DATE: 201205
